FAERS Safety Report 8730393 (Version 2)
Quarter: 2012Q4

REPORT INFORMATION
  Report Type: 
  Country: US (occurrence: US)
  Receive Date: 20120817
  Receipt Date: 20121003
  Transmission Date: 20130627
  Serious: No
  Sender: FDA-Public Use
  Company Number: US-ASTRAZENECA-2012SE56787

PATIENT
  Age: 38 Year
  Sex: Male
  Weight: 103.9 kg

DRUGS (25)
  1. NEXIUM [Suspect]
     Indication: ABDOMINAL DISCOMFORT
     Route: 048
  2. NEXIUM [Suspect]
     Indication: ABDOMINAL DISCOMFORT
     Route: 048
     Dates: start: 2004
  3. TOPROL XL [Suspect]
     Indication: ATRIAL FIBRILLATION
     Route: 048
  4. TOPROL XL [Suspect]
     Indication: HYPERTENSION
     Route: 048
  5. TOPROL XL [Suspect]
     Indication: ATRIAL FIBRILLATION
     Route: 048
     Dates: start: 201201
  6. TOPROL XL [Suspect]
     Indication: HYPERTENSION
     Route: 048
     Dates: start: 201201
  7. TOPROL XL [Suspect]
     Indication: ATRIAL FIBRILLATION
     Dosage: TID
     Route: 048
     Dates: start: 2002
  8. TOPROL XL [Suspect]
     Indication: HYPERTENSION
     Dosage: TID
     Route: 048
     Dates: start: 2002
  9. TOPROL XL [Suspect]
     Indication: ATRIAL FIBRILLATION
     Route: 048
     Dates: start: 20120717, end: 20120816
  10. TOPROL XL [Suspect]
     Indication: HYPERTENSION
     Route: 048
     Dates: start: 20120717, end: 20120816
  11. TOPROL XL [Suspect]
     Indication: ATRIAL FIBRILLATION
     Route: 048
     Dates: start: 20120816
  12. TOPROL XL [Suspect]
     Indication: HYPERTENSION
     Route: 048
     Dates: start: 20120816
  13. SINGULAIR [Concomitant]
  14. JANUVIA [Concomitant]
     Indication: DIABETES MELLITUS
  15. METFORMIN [Concomitant]
     Indication: DIABETES MELLITUS
  16. HCTZ [Concomitant]
     Indication: BLOOD PRESSURE ABNORMAL
  17. ENALAPRIL [Concomitant]
     Indication: BLOOD PRESSURE ABNORMAL
  18. XANAX [Concomitant]
     Indication: ANXIETY
  19. XANAX [Concomitant]
     Indication: PANIC ATTACK
  20. XANAX [Concomitant]
     Indication: BLOOD PRESSURE ABNORMAL
  21. TRICOR [Concomitant]
     Indication: BLOOD TRIGLYCERIDES
  22. LIIPITOR [Concomitant]
     Indication: BLOOD CHOLESTEROL ABNORMAL
  23. ASPIRIN [Concomitant]
  24. CLONIDINE [Concomitant]
     Indication: STRESS
  25. CLONIDINE [Concomitant]
     Indication: BLOOD PRESSURE ABNORMAL

REACTIONS (10)
  - Hypertension [Unknown]
  - Panic attack [Unknown]
  - Weight decreased [Unknown]
  - Limb discomfort [Unknown]
  - Back disorder [Unknown]
  - Stress [Unknown]
  - Anxiety disorder [Unknown]
  - Medication error [Unknown]
  - Drug ineffective [Unknown]
  - Off label use [Unknown]
